FAERS Safety Report 8875996 (Version 1)
Quarter: 2012Q4

REPORT INFORMATION
  Report Type: 
  Country: IT (occurrence: IT)
  Receive Date: 20121030
  Receipt Date: 20121030
  Transmission Date: 20130627
  Serious: Yes (Hospitalization)
  Sender: FDA-Public Use
  Company Number: PHHY2012IT096956

PATIENT
  Age: 38 Year
  Sex: Female

DRUGS (2)
  1. AZITHROMYCIN [Suspect]
     Indication: OROPHARYNGEAL PAIN
     Dosage: 1 DF
     Route: 048
     Dates: start: 20121020, end: 20121020
  2. EUTIROX [Concomitant]
     Indication: HYPOTHYROIDISM

REACTIONS (1)
  - Asthmatic crisis [Recovered/Resolved]
